FAERS Safety Report 19246387 (Version 1)
Quarter: 2021Q2

REPORT INFORMATION
  Report Type: Spontaneous
  Country: US (occurrence: US)
  Receive Date: 20210511
  Receipt Date: 20210511
  Transmission Date: 20210717
  Serious: Yes (Disabling)
  Sender: FDA-Public Use
  Company Number: None

PATIENT
  Age: 12 Year
  Sex: Female
  Weight: 40.5 kg

DRUGS (5)
  1. QUETIAPINE FUMARATE 50 MG TABLETS [Suspect]
     Active Substance: QUETIAPINE FUMARATE
     Indication: DEPRESSION
     Dosage: QUANTITY:30 TABLET(S);?
     Route: 048
     Dates: start: 20200313, end: 20200320
  2. LORATADINE. [Concomitant]
     Active Substance: LORATADINE
  3. ARNUITY  ELLIPTA INHAER [Concomitant]
  4. MULTIVITAMINS [Concomitant]
     Active Substance: VITAMINS
  5. OMEGA 3 FTTY ACID [Concomitant]

REACTIONS (13)
  - Cognitive disorder [None]
  - Drooling [None]
  - Menstrual disorder [None]
  - Amnesia [None]
  - Irritability [None]
  - Speech disorder [None]
  - Gait disturbance [None]
  - Musculoskeletal stiffness [None]
  - Aggression [None]
  - Tremor [None]
  - Decreased appetite [None]
  - Dizziness [None]
  - Agitation [None]

NARRATIVE: CASE EVENT DATE: 20200313
